FAERS Safety Report 15269348 (Version 1)
Quarter: 2018Q3

REPORT INFORMATION
  Report Type: Spontaneous
  Country: US (occurrence: US)
  Receive Date: 20180726
  Receipt Date: 20180726
  Transmission Date: 20181010
  Serious: Yes (Other)
  Sender: FDA-Public Use
  Company Number: None

PATIENT
  Age: 57 Year
  Sex: Female
  Weight: 51.8 kg

DRUGS (1)
  1. ESOMEPRAZOLE 40MG [Suspect]
     Active Substance: ESOMEPRAZOLE
     Indication: GASTROOESOPHAGEAL REFLUX DISEASE
     Route: 048
     Dates: start: 2015, end: 2018

REACTIONS (4)
  - Headache [None]
  - Nausea [None]
  - Vomiting [None]
  - Product substitution issue [None]

NARRATIVE: CASE EVENT DATE: 20171206
